FAERS Safety Report 11585036 (Version 2)
Quarter: 2017Q2

REPORT INFORMATION
  Report Type: Report from Study
  Country: DE (occurrence: DE)
  Receive Date: 20151001
  Receipt Date: 20170505
  Transmission Date: 20170829
  Serious: Yes (Death, Hospitalization)
  Sender: FDA-Public Use
  Company Number: DE-B.I. PHARMACEUTICALS,INC./RIDGEFIELD-2015-BI-53686DE

PATIENT
  Age: 77 Year
  Sex: Male

DRUGS (3)
  1. MCP 10 [Concomitant]
     Indication: PRODUCT USED FOR UNKNOWN INDICATION
     Dosage: 10
     Route: 065
  2. VALSARTAN. [Concomitant]
     Active Substance: VALSARTAN
     Indication: PRODUCT USED FOR UNKNOWN INDICATION
     Route: 065
  3. OFEV [Suspect]
     Active Substance: NINTEDANIB
     Indication: IDIOPATHIC PULMONARY FIBROSIS
     Route: 048
     Dates: start: 20150415

REACTIONS (4)
  - Bacteraemia [Fatal]
  - Multiple organ dysfunction syndrome [Fatal]
  - Diarrhoea [Fatal]
  - Abdominal pain upper [Fatal]
